FAERS Safety Report 25917617 (Version 2)
Quarter: 2025Q4

REPORT INFORMATION
  Report Type: Spontaneous
  Country: US (occurrence: US)
  Receive Date: 20251014
  Receipt Date: 20251118
  Transmission Date: 20260117
  Serious: No
  Sender: TOLMAR
  Company Number: US-Tolmar-TLM-2025-07338

PATIENT

DRUGS (2)
  1. ELIGARD [Suspect]
     Active Substance: LEUPROLIDE ACETATE
     Indication: Prostate cancer
     Dosage: EXPIRATION DATES: FEB-2027; FEB-2027; 28-FEB-2027?DOSE NOT ADMINISTERED?SERIAL: 2226588975917?GTIN:
  2. DEVICE [Suspect]
     Active Substance: DEVICE
     Indication: Prostate cancer
     Dosage: EXPIRATION DATES: FEB-2027; FEB-2027; 28-FEB-2027?SERIAL: 2226588975917?GTIN: 00362935227106.

REACTIONS (5)
  - Wrong technique in product usage process [Unknown]
  - Intercepted product preparation error [Unknown]
  - Device leakage [Unknown]
  - Device issue [Unknown]
  - Product quality issue [Unknown]
